FAERS Safety Report 9342607 (Version 1)
Quarter: 2013Q2

REPORT INFORMATION
  Report Type: Spontaneous
  Country: FR (occurrence: FR)
  Receive Date: 20130611
  Receipt Date: 20130611
  Transmission Date: 20140414
  Serious: Yes (Death)
  Sender: FDA-Public Use
  Company Number: FR-TEVA-411378ISR

PATIENT
  Sex: Male

DRUGS (1)
  1. FUROSEMIDE TEVA 40 MG [Suspect]
     Indication: OEDEMA PERIPHERAL
     Dosage: 80 MILLIGRAM DAILY; 1DF IN THE MORNING,1DF AT MID DAY/NOON
     Dates: start: 20130507

REACTIONS (2)
  - Death [Fatal]
  - Somnolence [Unknown]
